FAERS Safety Report 7032878-X (Version None)
Quarter: 2010Q4

REPORT INFORMATION
  Report Type: 
  Country: None (occurrence: None)
  Receive Date: 20101007
  Receipt Date: 20100923
  Transmission Date: 20110411
  Serious: Yes (Hospitalization)
  Sender: FDA-Public Use
  Company Number: DE-ROCHE-730642

PATIENT
  Sex: Female
  Weight: 48 kg

DRUGS (4)
  1. BEVACIZUMAB [Suspect]
     Dosage: 7TH CYCLE STARTED ON 12-AUG-2009 ACCORDING  TO FUFOX-A REGIMEN
     Route: 042
     Dates: end: 20100823
  2. FOLINIC ACID [Suspect]
     Dosage: 7TH CYCLE STARTED ON 12-AUG-2009 ACCORDING  TO FUFOX-A REGIMEN
     Route: 042
     Dates: end: 20100823
  3. FLUOROURACIL [Suspect]
     Dosage: 7TH CYCLE STARTED ON 12-AUG-2009 ACCORDING  TO FUFOX-A REGIMEN
     Route: 042
     Dates: end: 20100823
  4. OXALIPLATINE [Concomitant]
     Dosage: ACCORDING  TO FUFOX-A REGIMEN
     Dates: start: 20090801

REACTIONS (4)
  - GASTRITIS HAEMORRHAGIC [None]
  - GENERAL PHYSICAL HEALTH DETERIORATION [None]
  - OEDEMA [None]
  - VOMITING [None]
